FAERS Safety Report 9298273 (Version 1)
Quarter: 2013Q2

REPORT INFORMATION
  Report Type: Spontaneous
  Country: IT (occurrence: IT)
  Receive Date: 20130520
  Receipt Date: 20130520
  Transmission Date: 20140414
  Serious: Yes (Other)
  Sender: FDA-Public Use
  Company Number: IT-JNJFOC-20130512100

PATIENT
  Sex: 0

DRUGS (2)
  1. REACTINE DUO [Suspect]
     Route: 065
  2. REACTINE DUO [Suspect]
     Indication: PRODUCT USED FOR UNKNOWN INDICATION
     Route: 065

REACTIONS (1)
  - Tachycardia [Unknown]
